FAERS Safety Report 6556437-8 (Version None)
Quarter: 2010Q1

REPORT INFORMATION
  Report Type: 
  Country: None (occurrence: None)
  Receive Date: 20100128
  Receipt Date: 20100122
  Transmission Date: 20100710
  Serious: Yes (Hospitalization)
  Sender: FDA-Public Use
  Company Number: B0628597A

PATIENT
  Sex: Female

DRUGS (2)
  1. CLAMOXYL [Suspect]
     Dosage: 2UNIT PER DAY
     Route: 048
     Dates: start: 20091012, end: 20091016
  2. TAMIFLU [Suspect]
     Dosage: 75MG TWICE PER DAY
     Route: 048
     Dates: start: 20091005, end: 20091008

REACTIONS (10)
  - DERMATITIS [None]
  - ERYTHEMA [None]
  - INFLAMMATION [None]
  - LEUKOCYTOCLASTIC VASCULITIS [None]
  - PAIN [None]
  - PYREXIA [None]
  - RASH [None]
  - RASH PAPULAR [None]
  - SKIN LESION [None]
  - SKIN NODULE [None]
